FAERS Safety Report 6664275-0 (Version None)
Quarter: 2010Q2

REPORT INFORMATION
  Report Type: 
  Country: None (occurrence: None)
  Receive Date: 20100401
  Receipt Date: 20100323
  Transmission Date: 20101027
  Serious: Yes (Hospitalization)
  Sender: FDA-Public Use
  Company Number: PHHY2010GB06328

PATIENT
  Sex: Female

DRUGS (1)
  1. RASILEZ [Suspect]
     Dosage: 300 MG, UNK
     Route: 048

REACTIONS (5)
  - DYSPHAGIA [None]
  - GASTROSTOMY TUBE INSERTION [None]
  - SURGERY [None]
  - THROAT CANCER [None]
  - WRONG TECHNIQUE IN DRUG USAGE PROCESS [None]
